FAERS Safety Report 8818545 (Version 1)
Quarter: 2012Q4

REPORT INFORMATION
  Report Type: 
  Country: US (occurrence: US)
  Receive Date: 20121001
  Receipt Date: 20121001
  Transmission Date: 20130627
  Serious: Yes (Death, Other)
  Sender: FDA-Public Use
  Company Number: US-ASTRAZENECA-2012SE74613

PATIENT
  Sex: Female

DRUGS (1)
  1. BRILINTA [Suspect]
     Route: 048
     Dates: start: 2012

REACTIONS (3)
  - Death [Fatal]
  - Coronary artery disease [Unknown]
  - Treatment noncompliance [Unknown]
